FAERS Safety Report 6783357-6 (Version None)
Quarter: 2010Q2

REPORT INFORMATION
  Report Type: 
  Country: None (occurrence: None)
  Receive Date: 20100622
  Receipt Date: 20100611
  Transmission Date: 20101027
  Serious: Yes (Other)
  Sender: FDA-Public Use
  Company Number: ES-JNJFOC-20100604519

PATIENT
  Age: 61 Year
  Sex: Male

DRUGS (4)
  1. REMICADE [Suspect]
     Indication: CROHN'S DISEASE
     Dosage: 0, 2 AND 6 WEEKS
     Route: 042
  2. IMMUNOSUPPRESSANTS [Concomitant]
  3. CORTICOSTEROIDS NOS [Concomitant]
  4. AZATHIOPRINE [Concomitant]

REACTIONS (1)
  - KAPOSI'S SARCOMA [None]
